FAERS Safety Report 7579888-1 (Version None)
Quarter: 2011Q2

REPORT INFORMATION
  Report Type: 
  Country: None (occurrence: None)
  Receive Date: 20110629
  Receipt Date: 20110616
  Transmission Date: 20111010
  Serious: Yes (Hospitalization)
  Sender: FDA-Public Use
  Company Number: US-ELI_LILLY_AND_COMPANY-US201101003911

PATIENT
  Sex: Female
  Weight: 108.39 kg

DRUGS (3)
  1. FORTEO [Suspect]
     Dosage: 20 UG, QD
     Route: 058
  2. FORTEO [Suspect]
     Indication: OSTEOPOROSIS
     Dosage: 20 UG, DAILY (1/D)
     Route: 058
     Dates: start: 20101101
  3. FORTEO [Suspect]
     Dosage: 20 UG, DAILY (1/D)
     Route: 058

REACTIONS (7)
  - RADICULOPATHY [None]
  - SPINAL COLUMN STENOSIS [None]
  - BACK DISORDER [None]
  - INJECTION SITE HAEMATOMA [None]
  - SPINAL CLAUDICATION [None]
  - HYPOAESTHESIA [None]
  - PAIN IN EXTREMITY [None]
